FAERS Safety Report 9445712 (Version 3)
Quarter: 2013Q3

REPORT INFORMATION
  Report Type: Spontaneous
  Country: RU (occurrence: RU)
  Receive Date: 20130807
  Receipt Date: 20130927
  Transmission Date: 20140515
  Serious: Yes (Hospitalization)
  Sender: FDA-Public Use
  Company Number: RU-BRISTOL-MYERS SQUIBB COMPANY-19153535

PATIENT
  Age: 43 Year
  Sex: Male

DRUGS (1)
  1. ABILIFY [Suspect]
     Indication: SCHIZOAFFECTIVE DISORDER
     Dosage: INT:MAY2012, UNK:DOSE INC TO 30MG/D
     Dates: start: 201005

REACTIONS (1)
  - Schizophrenia [Recovered/Resolved]
